FAERS Safety Report 19233903 (Version 1)
Quarter: 2021Q2

REPORT INFORMATION
  Report Type: Spontaneous
  Country: US (occurrence: US)
  Receive Date: 20210508
  Receipt Date: 20210508
  Transmission Date: 20210717
  Serious: Yes (Hospitalization, Other)
  Sender: FDA-Public Use
  Company Number: US-UNITED THERAPEUTICS-UNT-2021-007787

PATIENT
  Sex: Female

DRUGS (7)
  1. SILDENAFIL. [Concomitant]
     Active Substance: SILDENAFIL
     Indication: PULMONARY ARTERIAL HYPERTENSION
     Dosage: UNK
     Route: 048
  2. REMODULIN [Suspect]
     Active Substance: TREPROSTINIL
     Indication: HEART DISEASE CONGENITAL
     Dosage: 0.021 ?G/KG, CONTINUING
     Route: 041
  3. SILDENAFIL. [Concomitant]
     Active Substance: SILDENAFIL
     Indication: HEART DISEASE CONGENITAL
  4. REMODULIN [Suspect]
     Active Substance: TREPROSTINIL
     Indication: PULMONARY ARTERIAL HYPERTENSION
     Dosage: 0.002 ?G/KG, CONTINUING
     Route: 041
  5. ENOXAPARIN [Concomitant]
     Active Substance: ENOXAPARIN
     Indication: ANTICOAGULANT THERAPY
     Dosage: UNK
     Route: 065
  6. SILDENAFIL. [Concomitant]
     Active Substance: SILDENAFIL
     Indication: RIGHT-TO-LEFT CARDIAC SHUNT
  7. REMODULIN [Suspect]
     Active Substance: TREPROSTINIL
     Indication: RIGHT-TO-LEFT CARDIAC SHUNT

REACTIONS (6)
  - Cardiac failure [Unknown]
  - Ventricular tachycardia [Unknown]
  - Peritoneal haematoma [Unknown]
  - Maternal exposure during pregnancy [Recovered/Resolved]
  - Thrombocytopenia [Unknown]
  - Intra-abdominal haemorrhage [Unknown]

NARRATIVE: CASE EVENT DATE: 2011
